FAERS Safety Report 8620873-6 (Version None)
Quarter: 2012Q3

REPORT INFORMATION
  Report Type: 
  Country: None (occurrence: None)
  Receive Date: 20120824
  Receipt Date: 20120810
  Transmission Date: 20120928
  Serious: Yes (Other)
  Sender: FDA-Public Use
  Company Number: US-ROCHE-1101177

PATIENT
  Age: 79 Year
  Sex: Male
  Weight: 79.45 kg

DRUGS (1)
  1. MABTHERA [Suspect]
     Indication: CHRONIC LYMPHOCYTIC LEUKAEMIA
     Route: 042
     Dates: start: 20120801

REACTIONS (2)
  - CONVULSION [None]
  - HYPERVENTILATION [None]
